FAERS Safety Report 9748774 (Version 1)
Quarter: 2013Q4

REPORT INFORMATION
  Report Type: Spontaneous
  Country: TR (occurrence: TR)
  Receive Date: 20131212
  Receipt Date: 20131212
  Transmission Date: 20140711
  Serious: Yes (Hospitalization)
  Sender: FDA-Public Use
  Company Number: TR-VERTEX PHARMACEUTICALS INC-2013-011728

PATIENT
  Age: 54 Year
  Sex: Male

DRUGS (10)
  1. INCIVO [Suspect]
     Indication: HEPATITIS C
     Dosage: 750 MG, TID
     Route: 065
  2. PEG INTERFERON [Suspect]
     Indication: HEPATITIS C
     Dosage: 135 ?G, QW
     Route: 065
  3. RIBAVIRIN [Suspect]
     Indication: HEPATITIS C
     Dosage: 800 MG, QD
     Route: 065
  4. RIBAVIRIN [Suspect]
     Dosage: 200 MG, QD
     Route: 065
  5. PROGRAF [Suspect]
     Indication: PRODUCT USED FOR UNKNOWN INDICATION
     Dosage: DOSAGE FORM: UNSPECIFIED
     Route: 065
  6. INSULIN [Concomitant]
     Indication: DIABETES MELLITUS
     Dosage: DOSAGE FORM: UNSPECIFIED
     Route: 065
  7. EPOETIN DELTA [Concomitant]
     Indication: PRODUCT USED FOR UNKNOWN INDICATION
     Dosage: DOSAGE FORM: UNSPECIFIED
     Route: 065
  8. EPOETIN DELTA [Concomitant]
     Dosage: 5 MG, QD
     Route: 065
  9. OTHER DRUGS (UNSPECIFIED) [Concomitant]
     Indication: PRODUCT USED FOR UNKNOWN INDICATION
     Dosage: DOSAGE FORM: UNSPECIFIED, 2X 50 MG
     Route: 065
  10. RED BLOOD CELL [Concomitant]
     Indication: PRODUCT USED FOR UNKNOWN INDICATION
     Dosage: DOSAGE FORM: UNSPECIFIED, ^2X 500 MG^
     Route: 065

REACTIONS (4)
  - Upper gastrointestinal haemorrhage [Recovered/Resolved]
  - Renal failure acute [Recovered/Resolved]
  - Anaemia [Unknown]
  - Off label use [Unknown]
